FAERS Safety Report 22954224 (Version 2)
Quarter: 2023Q4

REPORT INFORMATION
  Report Type: Spontaneous
  Country: US (occurrence: US)
  Receive Date: 20230918
  Receipt Date: 20231005
  Transmission Date: 20240110
  Serious: Yes (Hospitalization)
  Sender: FDA-Public Use
  Company Number: US-SAREPTA THERAPEUTICS INC.-SRP2023-003768

PATIENT
  Sex: Male

DRUGS (1)
  1. AMONDYS 45 [Suspect]
     Active Substance: CASIMERSEN
     Indication: Product used for unknown indication
     Dosage: 1842 MILLIGRAM, WEEKLY
     Route: 042

REACTIONS (3)
  - Spinal fusion surgery [Unknown]
  - Breath sounds abnormal [Unknown]
  - Gait inability [Unknown]
